FAERS Safety Report 14964005 (Version 2)
Quarter: 2018Q2

REPORT INFORMATION
  Report Type: Spontaneous
  Country: TH (occurrence: TH)
  Receive Date: 20180601
  Receipt Date: 20180611
  Transmission Date: 20180711
  Serious: Yes (Life-Threatening, Hospitalization, Other)
  Sender: FDA-Public Use
  Company Number: TH-GLENMARK PHARMACEUTICALS-2018GMK035820

PATIENT
  Age: 75 Year
  Sex: Male

DRUGS (2)
  1. TERBINAFINE HCL [Suspect]
     Active Substance: TERBINAFINE HYDROCHLORIDE
     Indication: PYTHIUM INSIDIOSUM INFECTION
     Dosage: 250 MG, OD
     Route: 065
     Dates: start: 20150227, end: 20150325
  2. POTASSIUM IODIDE. [Suspect]
     Active Substance: POTASSIUM IODIDE
     Indication: PYTHIUM INSIDIOSUM INFECTION
     Dosage: 6 G, OD
     Route: 065
     Dates: start: 20150227, end: 20150330

REACTIONS (2)
  - Hepatic function abnormal [Recovered/Resolved]
  - Drug reaction with eosinophilia and systemic symptoms [Recovering/Resolving]

NARRATIVE: CASE EVENT DATE: 20150322
